FAERS Safety Report 9804444 (Version 2)
Quarter: 2014Q1

REPORT INFORMATION
  Report Type: Spontaneous
  Country: US (occurrence: US)
  Receive Date: 20140108
  Receipt Date: 20140114
  Transmission Date: 20141002
  Serious: Yes (Other)
  Sender: FDA-Public Use
  Company Number: US-ABBVIE-14P-163-1187558-00

PATIENT
  Age: 1 Year
  Sex: Female

DRUGS (8)
  1. SYNAGIS [Suspect]
     Indication: PRODUCT USED FOR UNKNOWN INDICATION
     Route: 030
     Dates: start: 20121129
  2. SYNAGIS [Suspect]
     Dosage: 100MG/1ML VL LIQUID, 15 MG/KG ONCE MONTHLY
     Route: 030
     Dates: start: 20131113
  3. SYNAGIS [Suspect]
     Route: 030
     Dates: start: 20131212
  4. PULMICORT [Concomitant]
     Indication: PRODUCT USED FOR UNKNOWN INDICATION
     Dosage: 1 AMPULE DAILY
     Route: 055
  5. ALBUTEROL [Concomitant]
     Indication: PRODUCT USED FOR UNKNOWN INDICATION
  6. ZANTAC [Concomitant]
     Indication: PRODUCT USED FOR UNKNOWN INDICATION
  7. OTHER SHOTS [Concomitant]
     Indication: PRODUCT USED FOR UNKNOWN INDICATION
  8. FLU SHOT [Concomitant]
     Indication: PRODUCT USED FOR UNKNOWN INDICATION

REACTIONS (1)
  - Febrile convulsion [Unknown]
